FAERS Safety Report 8264780-X (Version None)
Quarter: 2012Q2

REPORT INFORMATION
  Report Type: 
  Country: None (occurrence: None)
  Receive Date: 20120406
  Receipt Date: 20120403
  Transmission Date: 20120825
  Serious: Yes (Other)
  Sender: FDA-Public Use
  Company Number: TW-JNJFOC-20120400753

PATIENT
  Age: 42 Year
  Sex: Female

DRUGS (2)
  1. MINOXIDIL [Suspect]
     Dosage: DECREASED TO MORE THAN HALF OF ONE BOTTLE CAP
     Route: 061
     Dates: start: 20120323, end: 20120326
  2. MINOXIDIL [Suspect]
     Indication: PRODUCT USED FOR UNKNOWN INDICATION
     Dosage: ONE BOTTLE CAP
     Route: 061
     Dates: start: 20120322, end: 20120322

REACTIONS (7)
  - VISION BLURRED [None]
  - HYPOAESTHESIA [None]
  - DIZZINESS [None]
  - HEADACHE [None]
  - PARAESTHESIA [None]
  - APPLICATION SITE PRURITUS [None]
  - WRONG DRUG ADMINISTERED [None]
